FAERS Safety Report 9167664 (Version 1)
Quarter: 2013Q1

REPORT INFORMATION
  Report Type: Spontaneous
  Country: IT (occurrence: IT)
  Receive Date: 20130318
  Receipt Date: 20130318
  Transmission Date: 20140127
  Serious: Yes (Disabling)
  Sender: FDA-Public Use
  Company Number: PHHY2013IT025053

PATIENT
  Sex: Male

DRUGS (4)
  1. ZOMETA [Suspect]
     Indication: PROSTATE CANCER
     Dosage: UNK UKN, UNK
     Route: 042
     Dates: start: 20120301, end: 20120606
  2. ZOMETA [Suspect]
     Dosage: UNK UKN, UNK
     Route: 042
     Dates: start: 201212, end: 20130228
  3. TAXOTERE [Concomitant]
     Dosage: UNK UKN, UNK
     Dates: start: 201301
  4. ZOLADEX [Concomitant]
     Dosage: UNK UKN, UNK
     Dates: start: 2010, end: 201212

REACTIONS (1)
  - Osteonecrosis of jaw [Not Recovered/Not Resolved]
